FAERS Safety Report 9746221 (Version 1)
Quarter: 2013Q4

REPORT INFORMATION
  Report Type: Spontaneous
  Country: CA (occurrence: None)
  Receive Date: 20131205
  Receipt Date: 20131205
  Transmission Date: 20140711
  Serious: Yes (Hospitalization)
  Sender: FDA-Public Use
  Company Number: CA-013885

PATIENT
  Age: 88 Year
  Sex: Male

DRUGS (10)
  1. FIRMAGON [Suspect]
     Indication: PROSTATE CANCER
     Dosage: 240 MG 1 X SUNCUTANEOUS
     Dates: start: 20130604, end: 20130604
  2. MORPHINE [Concomitant]
  3. DEMEROL [Concomitant]
  4. D VITAMIN NATURE MADE [Concomitant]
  5. ADDITIVA VITAMIN C [Concomitant]
  6. TIMOLOL [Concomitant]
  7. ASA [Concomitant]
  8. DILTIAZEM [Concomitant]
  9. TERAZOSIN [Concomitant]
  10. SPIRONOLACTONE [Concomitant]

REACTIONS (1)
  - Fall [None]
